FAERS Safety Report 19240655 (Version 2)
Quarter: 2021Q4

REPORT INFORMATION
  Report Type: Spontaneous
  Country: GB (occurrence: GB)
  Receive Date: 20210511
  Receipt Date: 20211123
  Transmission Date: 20220303
  Serious: Yes (Other)
  Sender: FDA-Public Use
  Company Number: None

PATIENT

DRUGS (3)
  1. PREDNISOLONE [Suspect]
     Active Substance: PREDNISOLONE
     Indication: Ill-defined disorder
     Dosage: 60 MG (60MG REDUCING TO 1MG)
     Route: 048
     Dates: start: 20190212, end: 20210426
  2. PREDNISOLONE [Suspect]
     Active Substance: PREDNISOLONE
     Indication: Giant cell arteritis
     Dosage: 1 MG (60MG REDUCING TO 1MG)
     Route: 048
     Dates: start: 20190212, end: 20210426
  3. LEVOTHYROXINE SODIUM ANHYDROUS [Concomitant]
     Active Substance: LEVOTHYROXINE SODIUM ANHYDROUS
     Indication: Ill-defined disorder
     Dosage: UNK

REACTIONS (5)
  - Hallucination [Unknown]
  - Dizziness [Unknown]
  - Vertigo [Unknown]
  - Nausea [Recovering/Resolving]
  - Psychiatric symptom [Unknown]

NARRATIVE: CASE EVENT DATE: 20210322
